FAERS Safety Report 10575850 (Version 2)
Quarter: 2014Q4

REPORT INFORMATION
  Report Type: Spontaneous
  Country: US (occurrence: US)
  Receive Date: 20141111
  Receipt Date: 20141111
  Transmission Date: 20150529
  Serious: Yes (Disabling)
  Sender: FDA-Public Use
  Company Number: US-CREALTA PHARMACEUTICALS-2012S1000079

PATIENT
  Sex: Male

DRUGS (8)
  1. BENADRYL [Concomitant]
     Active Substance: DIPHENHYDRAMINE HYDROCHLORIDE
     Indication: PREMEDICATION
  2. PHOSPHOLIPIDS [Concomitant]
     Active Substance: OMEGA-3 FATTY ACIDS
     Indication: ATRIAL FIBRILLATION
  3. COCONUT OIL [Concomitant]
     Active Substance: COCONUT OIL
     Indication: HYPERLIPIDAEMIA
  4. HYDROCORTISONE. [Suspect]
     Active Substance: HYDROCORTISONE
     Indication: PREMEDICATION
  5. KRYSTEXXA [Suspect]
     Active Substance: PEGLOTICASE
     Indication: GOUT
     Route: 042
  6. VITAMIN C [Concomitant]
     Active Substance: ASCORBIC ACID
     Indication: ATRIAL FIBRILLATION
  7. BILE ACID [Concomitant]
     Indication: ATRIAL FIBRILLATION
  8. GLUTATHIONE [Concomitant]
     Active Substance: GLUTATHIONE
     Indication: ATRIAL FIBRILLATION

REACTIONS (9)
  - Pyrexia [Unknown]
  - Pain [Unknown]
  - Gout [Unknown]
  - Hypertension [Unknown]
  - Chest pain [Unknown]
  - Insomnia [Unknown]
  - Blood glucose increased [Unknown]
  - Anxiety [Unknown]
  - Inflammatory marker increased [Unknown]
